FAERS Safety Report 25067047 (Version 1)
Quarter: 2025Q1

REPORT INFORMATION
  Report Type: Report from Study
  Country: US (occurrence: US)
  Receive Date: 20250312
  Receipt Date: 20250312
  Transmission Date: 20250409
  Serious: Yes (Other)
  Sender: ABBVIE
  Company Number: US-ABBVIE-6165787

PATIENT
  Age: 39 Year
  Sex: Female

DRUGS (1)
  1. SKYRIZI [Suspect]
     Active Substance: RISANKIZUMAB-RZAA
     Indication: Product used for unknown indication
     Route: 058
     Dates: start: 20220602

REACTIONS (6)
  - Road traffic accident [Unknown]
  - Spinal column injury [Unknown]
  - Limb injury [Unknown]
  - Back injury [Unknown]
  - Neoplasm [Unknown]
  - Psoriasis [Unknown]

NARRATIVE: CASE EVENT DATE: 20241101
